FAERS Safety Report 9974346 (Version 1)
Quarter: 2014Q1

REPORT INFORMATION
  Report Type: Spontaneous
  Country: US (occurrence: US)
  Receive Date: 20140306
  Receipt Date: 20140306
  Transmission Date: 20141002
  Serious: No
  Sender: FDA-Public Use
  Company Number: US-ABBVIE-13P-163-1158865-00

PATIENT
  Age: 56 Year
  Sex: Female

DRUGS (1)
  1. HUMIRA [Suspect]
     Indication: PSORIASIS
     Dates: start: 20130828

REACTIONS (11)
  - Night sweats [Not Recovered/Not Resolved]
  - Nightmare [Not Recovered/Not Resolved]
  - Visual impairment [Recovered/Resolved]
  - Pyrexia [Not Recovered/Not Resolved]
  - Migraine [Not Recovered/Not Resolved]
  - Oropharyngeal pain [Not Recovered/Not Resolved]
  - Injection site pain [Not Recovered/Not Resolved]
  - Visual impairment [Not Recovered/Not Resolved]
  - Drug ineffective [Not Recovered/Not Resolved]
  - Chills [Not Recovered/Not Resolved]
  - Hyperhidrosis [Not Recovered/Not Resolved]
